FAERS Safety Report 8418549-3 (Version None)
Quarter: 2012Q2

REPORT INFORMATION
  Report Type: 
  Country: None (occurrence: None)
  Receive Date: 20120530
  Receipt Date: 20120517
  Transmission Date: 20120825
  Serious: Yes (Hospitalization)
  Sender: FDA-Public Use
  Company Number: 2012SP019333

PATIENT
  Age: 60 Year
  Sex: Female
  Weight: 82.5547 kg

DRUGS (53)
  1. ADVIL [Concomitant]
  2. HYDROCHLORIDE [Concomitant]
  3. CIPROFLOXACIN [Concomitant]
  4. PROMETHAZINE [Concomitant]
  5. BENADRYL [Concomitant]
  6. ATENOLOL [Concomitant]
  7. RIBAVIRIN [Suspect]
     Indication: HEPATITIS C
     Dosage: SEE IMAGE
     Dates: start: 20120313, end: 20120313
  8. RIBAVIRIN [Suspect]
     Indication: HEPATITIS C
     Dosage: SEE IMAGE
     Dates: start: 20120314, end: 20120406
  9. RIBAVIRIN [Suspect]
     Indication: HEPATITIS C
     Dosage: SEE IMAGE
     Dates: start: 20120319, end: 20120410
  10. RIBAVIRIN [Suspect]
     Indication: HEPATITIS C
     Dosage: SEE IMAGE
     Dates: start: 20120326, end: 20120409
  11. RIBAVIRIN [Suspect]
     Indication: HEPATITIS C
     Dosage: SEE IMAGE
     Dates: start: 20111228, end: 20120312
  12. RIBAVIRIN [Suspect]
     Indication: HEPATITIS C
     Dosage: SEE IMAGE
     Dates: start: 20120205, end: 20120206
  13. RIBAVIRIN [Suspect]
     Indication: HEPATITIS C
     Dosage: SEE IMAGE
     Dates: start: 20120207, end: 20120311
  14. RIBAVIRIN [Suspect]
     Indication: HEPATITIS C
     Dosage: SEE IMAGE
     Dates: start: 20111227, end: 20120204
  15. RIBAVIRIN [Suspect]
     Indication: HEPATITIS C
     Dosage: SEE IMAGE
     Dates: start: 20120410, end: 20120410
  16. RIBAVIRIN [Suspect]
     Indication: HEPATITIS C
     Dosage: SEE IMAGE
     Dates: start: 20111227, end: 20111227
  17. RIBAVIRIN [Suspect]
     Indication: HEPATITIS C
     Dosage: SEE IMAGE
     Dates: start: 20120407, end: 20120409
  18. RIBAVIRIN [Suspect]
     Indication: HEPATITIS C
     Dosage: SEE IMAGE
     Dates: start: 20120312, end: 20120313
  19. RIBAVIRIN [Suspect]
     Indication: HEPATITIS C
     Dosage: SEE IMAGE
     Dates: start: 20120314, end: 20120325
  20. PEG-INTRON [Suspect]
     Indication: HEPATITIS C
     Dosage: SEE IMAGE
     Dates: start: 20111227, end: 20111227
  21. PEG-INTRON [Suspect]
     Indication: HEPATITIS C
     Dosage: SEE IMAGE
     Dates: start: 20120220, end: 20120220
  22. PEG-INTRON [Suspect]
     Indication: HEPATITIS C
     Dosage: SEE IMAGE
     Dates: start: 20120122, end: 20120122
  23. PEG-INTRON [Suspect]
     Indication: HEPATITIS C
     Dosage: SEE IMAGE
     Dates: start: 20120115, end: 20120115
  24. PEG-INTRON [Suspect]
     Indication: HEPATITIS C
     Dosage: SEE IMAGE
     Dates: start: 20120206, end: 20120206
  25. PEG-INTRON [Suspect]
     Indication: HEPATITIS C
     Dosage: SEE IMAGE
     Dates: start: 20120212, end: 20120212
  26. PEG-INTRON [Suspect]
     Indication: HEPATITIS C
     Dosage: SEE IMAGE
     Dates: start: 20120311, end: 20120311
  27. PEG-INTRON [Suspect]
     Indication: HEPATITIS C
     Dosage: SEE IMAGE
     Dates: start: 20120326, end: 20120326
  28. PEG-INTRON [Suspect]
     Indication: HEPATITIS C
     Dosage: SEE IMAGE
     Dates: start: 20120326, end: 20120409
  29. PEG-INTRON [Suspect]
     Indication: HEPATITIS C
     Dosage: SEE IMAGE
     Dates: start: 20120108, end: 20120108
  30. PEG-INTRON [Suspect]
     Indication: HEPATITIS C
     Dosage: SEE IMAGE
     Dates: start: 20120319, end: 20120319
  31. PEG-INTRON [Suspect]
     Indication: HEPATITIS C
     Dosage: SEE IMAGE
     Dates: start: 20120409, end: 20120409
  32. PEG-INTRON [Suspect]
     Indication: HEPATITIS C
     Dosage: SEE IMAGE
     Dates: start: 20120304, end: 20120304
  33. PEG-INTRON [Suspect]
     Indication: HEPATITIS C
     Dosage: SEE IMAGE
     Dates: start: 20120402, end: 20120402
  34. PEG-INTRON [Suspect]
     Indication: HEPATITIS C
     Dosage: SEE IMAGE
     Dates: start: 20120102, end: 20120102
  35. PEG-INTRON [Suspect]
     Indication: HEPATITIS C
     Dosage: SEE IMAGE
     Dates: start: 20120129, end: 20120129
  36. PEG-INTRON [Suspect]
     Indication: HEPATITIS C
     Dosage: SEE IMAGE
     Dates: start: 20120226, end: 20120226
  37. PLACEBO [Suspect]
     Dosage: 1 DF;UNK;UNK 0 DF;UNK;UNK 1 DF;UNK;UNK
     Dates: start: 20111227, end: 20120312
  38. PLACEBO [Suspect]
     Dosage: 1 DF;UNK;UNK 0 DF;UNK;UNK 1 DF;UNK;UNK
     Dates: start: 20120313, end: 20120313
  39. PLACEBO [Suspect]
     Dosage: 1 DF;UNK;UNK 0 DF;UNK;UNK 1 DF;UNK;UNK
     Dates: start: 20120314, end: 20120320
  40. METAPROLOL [Concomitant]
  41. TRAMADOL /00599202/ [Concomitant]
  42. VICTRELIS [Suspect]
     Indication: HEPATITIS C
     Dosage: SEE IMAGE
     Dates: start: 20120124, end: 20120124
  43. VICTRELIS [Suspect]
     Indication: HEPATITIS C
     Dosage: SEE IMAGE
     Dates: start: 20120227, end: 20120311
  44. VICTRELIS [Suspect]
     Indication: HEPATITIS C
     Dosage: SEE IMAGE
     Dates: start: 20120206, end: 20120206
  45. VICTRELIS [Suspect]
     Indication: HEPATITIS C
     Dosage: SEE IMAGE
     Dates: start: 20120207, end: 20120220
  46. VICTRELIS [Suspect]
     Indication: HEPATITIS C
     Dosage: SEE IMAGE
     Dates: start: 20120124, end: 20120319
  47. VICTRELIS [Suspect]
     Indication: HEPATITIS C
     Dosage: SEE IMAGE
     Dates: start: 20120320, end: 20120410
  48. VICTRELIS [Suspect]
     Indication: HEPATITIS C
     Dosage: SEE IMAGE
     Dates: start: 20120125, end: 20120204
  49. VICTRELIS [Suspect]
     Indication: HEPATITIS C
     Dosage: SEE IMAGE
     Dates: start: 20120205, end: 20120205
  50. VICTRELIS [Suspect]
     Indication: HEPATITIS C
     Dosage: SEE IMAGE
     Dates: start: 20120313, end: 20120313
  51. VICTRELIS [Suspect]
     Indication: HEPATITIS C
     Dosage: SEE IMAGE
     Dates: start: 20120314, end: 20120409
  52. VICTRELIS [Suspect]
     Indication: HEPATITIS C
     Dosage: SEE IMAGE
     Dates: start: 20120410, end: 20120410
  53. VICTRELIS [Suspect]
     Indication: HEPATITIS C
     Dosage: SEE IMAGE
     Dates: start: 20120312, end: 20120312

REACTIONS (4)
  - DYSPNOEA [None]
  - PALPITATIONS [None]
  - ATRIAL FIBRILLATION [None]
  - DIVERTICULITIS [None]
